FAERS Safety Report 5580521-9 (Version None)
Quarter: 2008Q1

REPORT INFORMATION
  Report Type: 
  Country: None (occurrence: None)
  Receive Date: 20080103
  Receipt Date: 20071220
  Transmission Date: 20080703
  Serious: Yes (Other)
  Sender: FDA-Public Use
  Company Number: US-ELI_LILLY_AND_COMPANY-US200712001630

PATIENT
  Age: 55 Year
  Sex: Female

DRUGS (5)
  1. HUMALOG [Suspect]
     Route: 058
     Dates: end: 20071126
  2. NOVOLOG [Concomitant]
  3. LEVOTHYROXINE SODIUM [Concomitant]
  4. ASPIRIN [Concomitant]
  5. VITAMIN D [Concomitant]

REACTIONS (8)
  - ABDOMINAL DISTENSION [None]
  - BLINDNESS [None]
  - BLOOD ALKALINE PHOSPHATASE INCREASED [None]
  - BLOOD GLUCOSE INCREASED [None]
  - DRUG INEFFECTIVE [None]
  - GLYCOSYLATED HAEMOGLOBIN INCREASED [None]
  - HEPATIC PAIN [None]
  - RENAL PAIN [None]
